FAERS Safety Report 14576614 (Version 11)
Quarter: 2019Q4

REPORT INFORMATION
  Report Type: Report from Study
  Country: HU (occurrence: HU)
  Receive Date: 20180227
  Receipt Date: 20191126
  Transmission Date: 20200122
  Serious: Yes (Death, Hospitalization, Other)
  Sender: FDA-Public Use
  Company Number: HU-ROCHE-2074326

PATIENT
  Age: 76 Year
  Sex: Male
  Weight: 86 kg

DRUGS (17)
  1. MANNITOL. [Concomitant]
     Active Substance: MANNITOL
     Indication: FLUID OVERLOAD
     Route: 065
     Dates: start: 20180222, end: 20180223
  2. COBIMETINIB. [Suspect]
     Active Substance: COBIMETINIB
     Indication: MALIGNANT MELANOMA
     Dosage: DATE OF MOST RECENT DOSE (40 MG) PRIOR TO EVENT ONSET: 03/JAN/2018.
     Route: 048
     Dates: start: 20170314
  3. DIAZEPAM. [Concomitant]
     Active Substance: DIAZEPAM
     Route: 065
     Dates: start: 20180222, end: 20180223
  4. TENAXUM [Concomitant]
     Active Substance: RILMENIDINE
     Indication: HYPERTENSION
     Route: 065
     Dates: start: 1977, end: 20180223
  5. XANAX [Concomitant]
     Active Substance: ALPRAZOLAM
     Indication: ANXIETY
     Route: 065
     Dates: start: 2014, end: 20180223
  6. PANTOPRAZOL [PANTOPRAZOLE] [Concomitant]
     Active Substance: PANTOPRAZOLE
     Indication: DYSPEPSIA
     Route: 065
     Dates: start: 20180222, end: 20180223
  7. RINGERS LACTATE [Concomitant]
     Active Substance: CALCIUM CHLORIDE\POTASSIUM CHLORIDE\SODIUM LACTATE
     Indication: HYPOVOLAEMIA
     Route: 065
     Dates: start: 20180222, end: 20180223
  8. COVEREX AS [Concomitant]
     Active Substance: PERINDOPRIL ARGININE
     Indication: HYPERTENSION
     Route: 065
     Dates: start: 1977, end: 20180223
  9. COVEREX [Concomitant]
     Active Substance: PERINDOPRIL ERBUMINE
     Indication: HYPERTENSION
     Route: 065
     Dates: start: 1977, end: 20180223
  10. NEBIVOLOL. [Concomitant]
     Active Substance: NEBIVOLOL
     Indication: HYPERTENSION
     Route: 065
     Dates: start: 20170508, end: 20180223
  11. DEXAMETHASON [DEXAMETHASONE] [Concomitant]
     Active Substance: DEXAMETHASONE
     Indication: HYDROCEPHALUS
     Route: 042
     Dates: start: 20180222, end: 20180223
  12. ASPIRIN [ACETYLSALICYLIC ACID] [Concomitant]
     Active Substance: ASPIRIN
     Indication: THROMBOSIS
     Route: 065
     Dates: start: 20170103, end: 20180223
  13. CLOPIDOGREL [Concomitant]
     Active Substance: CLOPIDOGREL BISULFATE
     Indication: THROMBOSIS
     Route: 065
     Dates: start: 20170106, end: 20180223
  14. GLUCOSE [Concomitant]
     Active Substance: DEXTROSE
     Route: 065
     Dates: start: 20180222, end: 20180223
  15. PLACEBO [Suspect]
     Active Substance: UNSPECIFIED INGREDIENT
     Indication: MALIGNANT MELANOMA
     Dosage: MOST RECENT DOSE PRIROR TO EVENT ONSET ON 16/JAN/2018
     Route: 042
     Dates: start: 20170411
  16. VEMURAFENIB. [Suspect]
     Active Substance: VEMURAFENIB
     Indication: MALIGNANT MELANOMA
     Dosage: DATE OF MOST RECENT DOSE (960 MG, 4 TABLETS OF 240 MG) OF VEMURAFENIB PRIOR TO EVENT ONSET: 03/JAN/2
     Route: 048
     Dates: start: 20170314
  17. ENOXAPARIN [Concomitant]
     Active Substance: ENOXAPARIN
     Route: 065
     Dates: start: 20180220, end: 20180223

REACTIONS (4)
  - Acute myocardial infarction [Recovered/Resolved]
  - Hydrocephalus [Fatal]
  - Dehydration [Recovered/Resolved]
  - Thalamus haemorrhage [Unknown]

NARRATIVE: CASE EVENT DATE: 20180103
